FAERS Safety Report 9380822 (Version 2)
Quarter: 2013Q3

REPORT INFORMATION
  Report Type: Spontaneous
  Country: US (occurrence: US)
  Receive Date: 20130702
  Receipt Date: 20130827
  Transmission Date: 20140515
  Serious: Yes (Hospitalization, Other)
  Sender: FDA-Public Use
  Company Number: US-TEVA-416009USA

PATIENT
  Sex: Female

DRUGS (9)
  1. PROAIR HFA [Suspect]
     Route: 055
  2. PEPCID [Concomitant]
  3. NORCO [Concomitant]
  4. SYNTHROID [Concomitant]
  5. LORAZEPAM [Concomitant]
  6. SINGULAIR [Concomitant]
  7. NAPROXEN [Concomitant]
  8. TRAMADOL [Concomitant]
  9. COUMADIN [Concomitant]

REACTIONS (2)
  - Small cell lung cancer [Recovering/Resolving]
  - Venous thrombosis [Unknown]
